FAERS Safety Report 5890680-6 (Version None)
Quarter: 2008Q3

REPORT INFORMATION
  Report Type: 
  Country: None (occurrence: None)
  Receive Date: 20080922
  Receipt Date: 20080912
  Transmission Date: 20090109
  Serious: Yes (Hospitalization, Other)
  Sender: FDA-Public Use
  Company Number: JP-ABBOTT-08P-087-0460029-00

PATIENT
  Age: 79 Year
  Sex: Male

DRUGS (11)
  1. LEUPROLIDE ACETATE [Suspect]
     Indication: PROSTATE CANCER STAGE II
     Route: 058
     Dates: start: 20060809
  2. LEUPROLIDE ACETATE [Suspect]
     Route: 058
     Dates: start: 20060512, end: 20060712
  3. CANDESARTAN CILEXETIL [Concomitant]
     Indication: HYPERTENSION
     Route: 048
  4. BICALUTAMIDE [Concomitant]
     Indication: PROSTATE CANCER STAGE II
     Route: 048
  5. NITRENDIPINE [Concomitant]
     Indication: HYPERTENSION
     Route: 048
  6. APRINDINE HYDROCHLORIDE [Concomitant]
     Indication: ARRHYTHMIA
     Route: 048
  7. TRIAZOLAM [Concomitant]
     Indication: INSOMNIA
     Route: 048
  8. OM POWDER [Concomitant]
     Indication: GASTRITIS
     Route: 048
  9. SENNA ALEXANDRINA LEAF [Concomitant]
     Indication: CONSTIPATION
     Route: 048
  10. FLURBIPROFEN [Concomitant]
     Indication: BACK PAIN
     Route: 062
     Dates: end: 20070612
  11. LACTOBACILLUS BIFIDUS, LYOPHILIZED [Concomitant]
     Indication: CONSTIPATION
     Route: 048

REACTIONS (3)
  - BLADDER CANCER [None]
  - CYSTITIS [None]
  - GASTRIC CANCER [None]
